FAERS Safety Report 23333227 (Version 1)
Quarter: 2023Q4

REPORT INFORMATION
  Report Type: Spontaneous
  Country: PT (occurrence: PT)
  Receive Date: 20231222
  Receipt Date: 20231222
  Transmission Date: 20240110
  Serious: Yes (Other)
  Sender: FDA-Public Use
  Company Number: PT-AKCEA THERAPEUTICS, INC.-2023IS002858

PATIENT

DRUGS (1)
  1. TEGSEDI [Suspect]
     Active Substance: INOTERSEN SODIUM
     Indication: Hereditary neuropathic amyloidosis
     Dosage: 284 MILLIGRAM, QW
     Route: 058

REACTIONS (9)
  - Glomerulonephritis rapidly progressive [Recovered/Resolved]
  - Nephrotic syndrome [Recovered/Resolved]
  - Renal failure [Recovered/Resolved]
  - Tubulointerstitial nephritis [Recovered/Resolved]
  - C3 glomerulopathy [Recovered/Resolved]
  - Complement factor C3 decreased [Recovered/Resolved]
  - Complement factor C4 decreased [Recovered/Resolved]
  - Eosinophilia [Recovered/Resolved]
  - Urinary sediment abnormal [Recovered/Resolved]
